FAERS Safety Report 6146040-6 (Version None)
Quarter: 2009Q2

REPORT INFORMATION
  Report Type: 
  Country: None (occurrence: None)
  Receive Date: 20090403
  Receipt Date: 20090325
  Transmission Date: 20091009
  Serious: Yes (Other)
  Sender: FDA-Public Use
  Company Number: 2008SP004239

PATIENT
  Age: 30 Year
  Sex: Female

DRUGS (1)
  1. DESLORATADINE [Suspect]
     Indication: HYPERSENSITIVITY
     Dosage: PO
     Route: 048

REACTIONS (7)
  - ASTHENIA [None]
  - BODY TEMPERATURE INCREASED [None]
  - DELIRIUM [None]
  - HYPERHIDROSIS [None]
  - MUSCLE CONTRACTIONS INVOLUNTARY [None]
  - MUSCLE SPASMS [None]
  - SPEECH DISORDER [None]
